FAERS Safety Report 22966228 (Version 2)
Quarter: 2023Q4

REPORT INFORMATION
  Report Type: Report from Study
  Country: IT (occurrence: IT)
  Receive Date: 20230921
  Receipt Date: 20231020
  Transmission Date: 20240109
  Serious: Yes (Hospitalization, Other)
  Sender: FDA-Public Use
  Company Number: IT-BAXTER-2023BAX030814

PATIENT
  Age: 65 Year
  Sex: Female
  Weight: 56 kg

DRUGS (17)
  1. VINCRISTINE SULFATE [Suspect]
     Active Substance: VINCRISTINE SULFATE
     Indication: Diffuse large B-cell lymphoma
     Dosage: ONGOING
     Route: 042
     Dates: start: 20230606
  2. DOXORUBICIN HYDROCHLORIDE [Suspect]
     Active Substance: DOXORUBICIN HYDROCHLORIDE
     Indication: Diffuse large B-cell lymphoma
     Dosage: ONGOING
     Route: 042
     Dates: start: 20230606
  3. RITUXIMAB [Suspect]
     Active Substance: RITUXIMAB
     Indication: Diffuse large B-cell lymphoma
     Dosage: ONGOING
     Route: 042
     Dates: start: 20230606
  4. CYCLOPHOSPHAMIDE [Suspect]
     Active Substance: CYCLOPHOSPHAMIDE
     Indication: Diffuse large B-cell lymphoma
     Dosage: 1235.2 MG, EVERY 3 WEEKS
     Route: 042
     Dates: start: 20230606
  5. PREDNISONE [Suspect]
     Active Substance: PREDNISONE
     Indication: Diffuse large B-cell lymphoma
     Dosage: ONGOING
     Route: 042
     Dates: start: 20230606
  6. EPCORITAMAB [Suspect]
     Active Substance: EPCORITAMAB
     Indication: Diffuse large B-cell lymphoma
     Dosage: C4D8 (ONGOING)
     Route: 058
     Dates: start: 20230607
  7. ONDANSETRON [Concomitant]
     Active Substance: ONDANSETRON
     Indication: Prophylaxis of nausea and vomiting
     Dosage: 3 DF, AS NEEDED
     Route: 065
     Dates: start: 20230702
  8. ALLOPURINOL [Concomitant]
     Active Substance: ALLOPURINOL
     Indication: Hyperuricaemia
     Dosage: 300 MG, DAILY
     Route: 065
     Dates: start: 2005
  9. BACTRIM [Concomitant]
     Active Substance: SULFAMETHOXAZOLE\TRIMETHOPRIM
     Indication: Prophylaxis
     Dosage: 1 DF, 3/ WEEKS
     Route: 065
     Dates: start: 20230606
  10. ACYCLOVIR [Concomitant]
     Active Substance: ACYCLOVIR
     Indication: Antiviral prophylaxis
     Dosage: 400 MG, 2X/DAY
     Route: 065
     Dates: start: 20230606
  11. EPOETIN ALFA BS [Concomitant]
     Active Substance: ERYTHROPOIETIN
     Indication: Anaemia prophylaxis
     Dosage: 40000 UL, WEEKLY, EVERY 1 WEEK
     Route: 065
     Dates: start: 20230609
  12. PIPERACILLIN SODIUM\TAZOBACTAM SODIUM [Concomitant]
     Active Substance: PIPERACILLIN SODIUM\TAZOBACTAM SODIUM
     Indication: Cytokine release syndrome
     Dosage: 4.5 G, 3X/DAY
     Route: 065
     Dates: start: 20230622
  13. ENOXAPARIN [Concomitant]
     Active Substance: ENOXAPARIN
     Indication: Thrombosis
     Dosage: 4000 UL, 1X/DAY
     Route: 065
     Dates: start: 20230606
  14. PANTOPRAZOLE [Concomitant]
     Active Substance: PANTOPRAZOLE
     Indication: Gastric ulcer
     Dosage: 20 MG, 2X/DAY
     Route: 065
     Dates: start: 20230606
  15. POLYETHYLENE GLYCOLS [Concomitant]
     Active Substance: POLYETHYLENE GLYCOLS
     Indication: Constipation prophylaxis
     Dosage: 3 DF, AS NEEDED
     Route: 065
     Dates: start: 20230610
  16. ENTECAVIR [Concomitant]
     Active Substance: ENTECAVIR
     Indication: Prophylaxis
     Dosage: 0.5 MG, DAILY, EVERY 24 HOURS
     Route: 065
     Dates: start: 20230606
  17. LORMETAZEPAM AL [Concomitant]
     Indication: Insomnia
     Dosage: 10 DROP, DAILY, EVERY 1 DAY
     Route: 065
     Dates: start: 20230608

REACTIONS (1)
  - Cytomegalovirus infection reactivation [Recovered/Resolved]

NARRATIVE: CASE EVENT DATE: 20230821
